FAERS Safety Report 8709175 (Version 4)
Quarter: 2014Q2

REPORT INFORMATION
  Report Type: Spontaneous
  Country: US (occurrence: US)
  Receive Date: 20120806
  Receipt Date: 20140630
  Transmission Date: 20141212
  Serious: Yes (Hospitalization)
  Sender: FDA-Public Use
  Company Number: US-BAYER-2012-076183

PATIENT
  Age: 38 Year
  Sex: Female
  Weight: 152.38 kg

DRUGS (13)
  1. MIRENA [Suspect]
     Indication: MENORRHAGIA
     Dosage: 20 MCG/24HR, CONT
     Route: 015
     Dates: start: 20090410, end: 20111107
  2. SERTRALINE [Concomitant]
  3. ESOMEPRAZOLE [Concomitant]
  4. MOTRIN [Concomitant]
     Indication: ABDOMINAL PAIN
  5. ALEVE LIQUID GELS [Concomitant]
     Indication: ABDOMINAL PAIN
  6. NEXIUM [Concomitant]
     Dosage: 40 MG, UNK
     Dates: start: 2001
  7. CELEXA [Concomitant]
     Dosage: 20 MG, UNK
     Route: 048
     Dates: start: 2001
  8. ATENOLOL [Concomitant]
     Dosage: 25 MG, UNK
     Dates: start: 2001
  9. LEVOTHYROXINE [Concomitant]
     Dosage: 0.025 MG, UNK
  10. SYNTHROID [Concomitant]
     Dosage: 0.025 MG, UNK
  11. DOCUSATE [Concomitant]
     Dosage: 240 MG, UNK
  12. IBUPROFEN [Concomitant]
     Dosage: 800 MG, UNK
  13. TYLENOL WITH CODEINE [Concomitant]

REACTIONS (13)
  - Uterine perforation [None]
  - Hysterectomy [None]
  - Pain [None]
  - Pelvic adhesions [None]
  - Menstruation irregular [None]
  - Injury [None]
  - Emotional disorder [None]
  - Vaginal haemorrhage [None]
  - Uterine injury [None]
  - Uterine cervical laceration [None]
  - Rectal injury [None]
  - Depression [None]
  - Device issue [None]
